FAERS Safety Report 6698418-X (Version None)
Quarter: 2010Q2

REPORT INFORMATION
  Report Type: 
  Country: None (occurrence: None)
  Receive Date: 20100427
  Receipt Date: 20100420
  Transmission Date: 20101027
  Serious: Yes (Hospitalization)
  Sender: FDA-Public Use
  Company Number: FR-ROCHE-696343

PATIENT
  Sex: Male
  Weight: 52 kg

DRUGS (5)
  1. METHOXY POLYETHYLENE GLYCOL-EPOETIN BETA [Suspect]
     Dosage: FORM: PRE-FILLED SYRINGE. LAST DOSE PRIOR TO SAE 30 MAR 2010
     Route: 042
     Dates: start: 20100330
  2. RIVOTRIL [Concomitant]
     Dosage: TDD REPORTED AS: III/J
  3. KARDEGIC [Concomitant]
  4. DEDROGYL [Concomitant]
     Dosage: 3G/SEM
  5. MOPRAL [Concomitant]

REACTIONS (1)
  - SYNCOPE [None]
